FAERS Safety Report 8255573-8 (Version None)
Quarter: 2012Q1

REPORT INFORMATION
  Report Type: 
  Country: None (occurrence: None)
  Receive Date: 20120330
  Receipt Date: 20120315
  Transmission Date: 20120608
  Serious: Yes (Hospitalization, Other)
  Sender: FDA-Public Use
  Company Number: AUR-APL-2012-01580

PATIENT
  Age: 6 Year
  Sex: Female

DRUGS (3)
  1. PIOGLITAZONE HYDROCHLORIDE [Suspect]
     Indication: DIABETES MELLITUS
  2. INSULIN (INSULIN) [Suspect]
     Indication: DIABETES MELLITUS
     Dosage: (UP TO 320 U DAILY)
  3. METFORMIN HCL [Suspect]
     Indication: DIABETES MELLITUS

REACTIONS (3)
  - PANCREATITIS ACUTE [None]
  - VAGINAL HAEMORRHAGE [None]
  - DIABETES MELLITUS INADEQUATE CONTROL [None]
